FAERS Safety Report 5456437-5 (Version None)
Quarter: 2007Q3

REPORT INFORMATION
  Report Type: 
  Country: None (occurrence: None)
  Receive Date: 20070918
  Receipt Date: 20070913
  Transmission Date: 20080115
  Serious: Yes (Hospitalization)
  Sender: FDA-Public Use
  Company Number: FR-ELI_LILLY_AND_COMPANY-FR200709002766

PATIENT
  Age: 76 Year
  Sex: Female

DRUGS (5)
  1. FORTEO [Suspect]
     Indication: OSTEOPOROSIS
     Dosage: 20 UG, DAILY (1/D)
     Route: 058
     Dates: start: 20060903
  2. GLUCOPHAGE [Concomitant]
  3. COAPROVEL [Concomitant]
  4. LOXEN [Concomitant]
  5. CALTRATE [Concomitant]

REACTIONS (1)
  - FEMUR FRACTURE [None]
